FAERS Safety Report 10739782 (Version 1)
Quarter: 2015Q1

REPORT INFORMATION
  Report Type: Spontaneous
  Country: US (occurrence: US)
  Receive Date: 20150127
  Receipt Date: 20150127
  Transmission Date: 20150721
  Serious: Yes (Other)
  Sender: FDA-Public Use
  Company Number: US-JNJFOC-20150111520

PATIENT
  Age: 24 Year
  Sex: Male

DRUGS (1)
  1. EXTRA STRENGTH TYLENOL CAPLETS [Suspect]
     Active Substance: ACETAMINOPHEN
     Indication: SUICIDE ATTEMPT
     Dosage: 12- 15 TABS AT 1530
     Route: 048
     Dates: start: 20081231, end: 20081231

REACTIONS (1)
  - Intentional overdose [Unknown]

NARRATIVE: CASE EVENT DATE: 20081231
